FAERS Safety Report 9386651 (Version 1)
Quarter: 2013Q3

REPORT INFORMATION
  Report Type: Report from Study
  Country: BR (occurrence: BR)
  Receive Date: 20130708
  Receipt Date: 20130708
  Transmission Date: 20140515
  Serious: Yes (Other)
  Sender: FDA-Public Use
  Company Number: PHHY2013BR070595

PATIENT
  Sex: Female

DRUGS (9)
  1. DIOVAN AMLO FIX [Suspect]
     Indication: BLOOD PRESSURE
     Dosage: 1 UKN, DAILY
  2. ATORVASTATIN [Suspect]
     Dosage: UNK UKN, UNK
  3. LIPITOR [Suspect]
     Indication: BLOOD PRESSURE
     Dosage: 0.5 DF(80MG), DAILY
  4. LIPITOR [Suspect]
     Indication: DIABETES MELLITUS
  5. MODURETIC [Suspect]
     Indication: BLOOD PRESSURE
     Dosage: 1 UKN, DAILY
  6. ASPIRIN [Suspect]
     Dosage: UNK UKN, UNK
  7. CYMBALTA [Concomitant]
     Indication: PAIN
     Dosage: UNK UKN, UNK
  8. LYRICA [Concomitant]
     Indication: PAIN
     Dosage: UNK UKN, UNK
  9. MIOSAN [Concomitant]
     Indication: PAIN
     Dosage: UNK UKN, UNK

REACTIONS (3)
  - Fall [Not Recovered/Not Resolved]
  - Femur fracture [Not Recovered/Not Resolved]
  - Pain [Unknown]
